FAERS Safety Report 7127582-3 (Version None)
Quarter: 2010Q4

REPORT INFORMATION
  Report Type: 
  Country: None (occurrence: None)
  Receive Date: 20101129
  Receipt Date: 20101118
  Transmission Date: 20110411
  Serious: Yes (Other)
  Sender: FDA-Public Use
  Company Number: PHHY2010US79580

PATIENT

DRUGS (1)
  1. RECLAST [Suspect]
     Dosage: 5 MG/100 ML, ANNUALLY
     Route: 042

REACTIONS (1)
  - OSTEONECROSIS OF JAW [None]
